FAERS Safety Report 5051729-6 (Version None)
Quarter: 2006Q3

REPORT INFORMATION
  Report Type: 
  Country: None (occurrence: None)
  Receive Date: 20060710
  Receipt Date: 20060630
  Transmission Date: 20061208
  Serious: Yes (Life-Threatening, Hospitalization)
  Sender: FDA-Public Use
  Company Number: 2006-04-0929

PATIENT
  Age: 58 Year
  Sex: Female

DRUGS (6)
  1. PEG-INTRON [Suspect]
  2. RIBAVIRIN [Suspect]
     Indication: HEPATITIS C
     Dosage: ORAL
     Route: 048
  3. PROZAC [Concomitant]
  4. LIPITOR [Concomitant]
  5. ASPIRIN BABY [Concomitant]
  6. VALIUM [Concomitant]

REACTIONS (10)
  - ABDOMINAL PAIN [None]
  - DELIRIUM [None]
  - HAEMATEMESIS [None]
  - HAEMOGLOBIN DECREASED [None]
  - INFLUENZA LIKE ILLNESS [None]
  - LACTIC ACIDOSIS [None]
  - MENTAL STATUS CHANGES [None]
  - PNEUMONIA STAPHYLOCOCCAL [None]
  - SEPTIC SHOCK [None]
  - STOMACH DISCOMFORT [None]
